FAERS Safety Report 5315594-1 (Version None)
Quarter: 2007Q2

REPORT INFORMATION
  Report Type: 
  Country: None (occurrence: None)
  Receive Date: 20070427
  Receipt Date: 20070417
  Transmission Date: 20071010
  Serious: Yes (Hospitalization)
  Sender: FDA-Public Use
  Company Number: 2007BI008321

PATIENT
  Age: 56 Year
  Sex: Female

DRUGS (1)
  1. NATALIZUMAB [Suspect]
     Indication: MULTIPLE SCLEROSIS
     Dosage: 300 MG;QM;IV
     Route: 042
     Dates: start: 20061001, end: 20070222

REACTIONS (8)
  - FATIGUE [None]
  - HEADACHE [None]
  - HEMIPLEGIA [None]
  - HYPOTENSION [None]
  - HYPOTHYROIDISM [None]
  - MONOPLEGIA [None]
  - ORTHOSTATIC HYPOTENSION [None]
  - THYROID CANCER [None]
